FAERS Safety Report 5983741-4 (Version None)
Quarter: 2008Q4

REPORT INFORMATION
  Report Type: 
  Country: None (occurrence: None)
  Receive Date: 20081208
  Receipt Date: 20071212
  Transmission Date: 20090506
  Serious: Yes (Hospitalization)
  Sender: FDA-Public Use
  Company Number: US-AMGEN-STX248753

PATIENT
  Sex: Female
  Weight: 89.4 kg

DRUGS (7)
  1. ENBREL [Suspect]
     Indication: RHEUMATOID ARTHRITIS
     Route: 058
     Dates: start: 20041011
  2. METHOTREXATE [Concomitant]
     Route: 065
     Dates: start: 20020901
  3. PREDNISONE TAB [Concomitant]
     Route: 065
     Dates: start: 20020701
  4. MEDROL [Concomitant]
     Route: 065
  5. FOLIC ACID [Concomitant]
     Route: 065
  6. SYNTHROID [Concomitant]
     Route: 065
  7. VASOTEC [Concomitant]
     Route: 065

REACTIONS (3)
  - CARCINOID TUMOUR PULMONARY [None]
  - DYSPNOEA [None]
  - MUSCULOSKELETAL STIFFNESS [None]
